FAERS Safety Report 12894045 (Version 1)
Quarter: 2016Q4

REPORT INFORMATION
  Report Type: Spontaneous
  Country: US (occurrence: US)
  Receive Date: 20161028
  Receipt Date: 20161028
  Transmission Date: 20170207
  Serious: Yes (Hospitalization, Other)
  Sender: FDA-Public Use
  Company Number: US-JNJFOC-20161023352

PATIENT
  Sex: Female

DRUGS (1)
  1. LEVAQUIN [Suspect]
     Active Substance: LEVOFLOXACIN
     Indication: PRODUCT USED FOR UNKNOWN INDICATION
     Route: 065

REACTIONS (8)
  - Myopathy [Unknown]
  - Oral herpes [Unknown]
  - Abdominal pain upper [Unknown]
  - Encephalopathy [Unknown]
  - Hyperbilirubinaemia [Unknown]
  - Headache [Unknown]
  - Nausea [Unknown]
  - Transaminases increased [Unknown]

NARRATIVE: CASE EVENT DATE: 201208
